FAERS Safety Report 23172963 (Version 2)
Quarter: 2023Q4

REPORT INFORMATION
  Report Type: Spontaneous
  Country: US (occurrence: None)
  Receive Date: 20231110
  Receipt Date: 20231124
  Transmission Date: 20240109
  Serious: Yes (Other)
  Sender: FDA-Public Use
  Company Number: US-FARMAPROD-202310-3020

PATIENT
  Age: 84 Year
  Sex: Male

DRUGS (5)
  1. OXERVATE [Suspect]
     Active Substance: CENEGERMIN-BKBJ
     Indication: Neurotrophic keratopathy
     Route: 047
     Dates: start: 20230831
  2. DUPIXENT [Concomitant]
     Active Substance: DUPILUMAB
     Dosage: 300 MG / 2 ML PEN INJECTOR.
  3. MULTIVITAMIN 50 PLUS [Concomitant]
  4. MESALAMINE [Concomitant]
     Active Substance: MESALAMINE
  5. OMEPRAZOLE [Concomitant]
     Active Substance: OMEPRAZOLE

REACTIONS (3)
  - Gallbladder operation [Unknown]
  - Ophthalmic herpes zoster [Unknown]
  - Eye pain [Unknown]

NARRATIVE: CASE EVENT DATE: 20231002
